FAERS Safety Report 21458870 (Version 1)
Quarter: 2022Q4

REPORT INFORMATION
  Report Type: Spontaneous
  Country: DE (occurrence: DE)
  Receive Date: 20221014
  Receipt Date: 20221014
  Transmission Date: 20230112
  Serious: Yes (Other)
  Sender: FDA-Public Use
  Company Number: None

PATIENT
  Age: 45 Year
  Sex: Female
  Weight: 49 kg

DRUGS (8)
  1. TOPAMAX [Suspect]
     Active Substance: TOPIRAMATE
     Indication: Visual impairment
     Route: 048
     Dates: start: 20180221, end: 20181105
  2. TOPAMAX [Suspect]
     Active Substance: TOPIRAMATE
     Indication: Migraine prophylaxis
  3. FLUNARIZINE [Suspect]
     Active Substance: FLUNARIZINE
     Indication: Migraine
     Route: 048
     Dates: start: 20150727, end: 20180220
  4. FLUNARIZINE [Suspect]
     Active Substance: FLUNARIZINE
     Indication: Visual impairment
     Route: 048
  5. FLUNARIZINE [Suspect]
     Active Substance: FLUNARIZINE
     Indication: Migraine prophylaxis
     Route: 048
  6. FLUNARIZINE [Suspect]
     Active Substance: FLUNARIZINE
     Indication: Migraine prophylaxis
     Route: 048
     Dates: start: 20150727, end: 20180221
  7. FLUNARIZINE [Suspect]
     Active Substance: FLUNARIZINE
     Indication: Migraine
  8. FLUNARIZINE [Suspect]
     Active Substance: FLUNARIZINE
     Indication: Visual impairment

REACTIONS (5)
  - Major depression [Recovered/Resolved]
  - Anhedonia [Recovered/Resolved]
  - Loss of personal independence in daily activities [Recovered/Resolved]
  - Apathy [Recovered/Resolved]
  - Depression [Recovered/Resolved]

NARRATIVE: CASE EVENT DATE: 20150813
